FAERS Safety Report 7573527-1 (Version None)
Quarter: 2011Q2

REPORT INFORMATION
  Report Type: 
  Country: None (occurrence: None)
  Receive Date: 20110627
  Receipt Date: 20110615
  Transmission Date: 20111010
  Serious: Yes (Other)
  Sender: FDA-Public Use
  Company Number: PHHY2011CA34745

PATIENT
  Sex: Male

DRUGS (1)
  1. ZOMETA [Suspect]
     Indication: PROSTATE CANCER
     Dosage: 3 MG, EVERY 4 WEEKS
     Route: 042
     Dates: start: 20110411, end: 20110614

REACTIONS (9)
  - BONE PAIN [None]
  - BLOOD PRESSURE INCREASED [None]
  - NAUSEA [None]
  - ANAEMIA [None]
  - METASTASES TO BONE [None]
  - CONSTIPATION [None]
  - VOMITING [None]
  - PROSTATIC SPECIFIC ANTIGEN INCREASED [None]
  - MALAISE [None]
